FAERS Safety Report 22116961 (Version 4)
Quarter: 2023Q2

REPORT INFORMATION
  Report Type: Report from Study
  Country: CA (occurrence: CA)
  Receive Date: 20230320
  Receipt Date: 20230501
  Transmission Date: 20230721
  Serious: Yes (Other)
  Sender: FDA-Public Use
  Company Number: CA-HLS-202300665

PATIENT
  Age: 29 Year
  Sex: Male
  Weight: 81 kg

DRUGS (2)
  1. CLOZARIL [Suspect]
     Active Substance: CLOZAPINE
     Indication: Product used for unknown indication
     Dosage: 300 MG HS (INCREASED A WEEK AGO)
     Route: 048
     Dates: start: 20230113
  2. ATROPINE SULFATE [Concomitant]
     Active Substance: ATROPINE SULFATE
     Indication: Salivary hypersecretion
     Dosage: 1% DROPS TWICE DAILY AS NEEDED.
     Route: 065

REACTIONS (6)
  - Blood pressure increased [Unknown]
  - Electrocardiogram repolarisation abnormality [Not Recovered/Not Resolved]
  - Palpitations [Unknown]
  - Tachycardia [Not Recovered/Not Resolved]
  - Salivary hypersecretion [Unknown]
  - Blood pressure orthostatic decreased [Unknown]

NARRATIVE: CASE EVENT DATE: 20230113
